FAERS Safety Report 20739956 (Version 2)
Quarter: 2022Q2

REPORT INFORMATION
  Report Type: Spontaneous
  Country: GB (occurrence: GB)
  Receive Date: 20220422
  Receipt Date: 20220523
  Transmission Date: 20220721
  Serious: No
  Sender: FDA-Public Use
  Company Number: GB-PFIZER INC-202200415121

PATIENT
  Age: 24 Year
  Sex: Female

DRUGS (1)
  1. GENOTROPIN [Suspect]
     Active Substance: SOMATROPIN
     Dosage: 1 MG

REACTIONS (2)
  - Drug dose omission by device [Unknown]
  - Device breakage [Unknown]
